FAERS Safety Report 6889778-5 (Version None)
Quarter: 2010Q3

REPORT INFORMATION
  Report Type: 
  Country: None (occurrence: None)
  Receive Date: 20100730
  Receipt Date: 20080423
  Transmission Date: 20110219
  Serious: No
  Sender: FDA-Public Use
  Company Number: US-PFIZER INC-2008035977

PATIENT
  Sex: Male
  Weight: 89.09 kg

DRUGS (2)
  1. LIPITOR [Suspect]
  2. GEMFIBROZIL [Suspect]

REACTIONS (1)
  - MYALGIA [None]
